FAERS Safety Report 4641260-1 (Version None)
Quarter: 2005Q2

REPORT INFORMATION
  Report Type: 
  Country: None (occurrence: None)
  Receive Date: 20050421
  Receipt Date: 20050411
  Transmission Date: 20051028
  Serious: Yes (Other)
  Sender: FDA-Public Use
  Company Number: SE-JNJFOC-20050403373

PATIENT
  Sex: Female

DRUGS (1)
  1. CONCERTA [Suspect]
     Indication: DRUG USE FOR UNKNOWN INDICATION

REACTIONS (1)
  - SPEECH DISORDER [None]
